FAERS Safety Report 7199419-8 (Version None)
Quarter: 2010Q4

REPORT INFORMATION
  Report Type: 
  Country: None (occurrence: None)
  Receive Date: 20101228
  Receipt Date: 20101221
  Transmission Date: 20110411
  Serious: Yes (Other)
  Sender: FDA-Public Use
  Company Number: BR-PFIZER INC-2010159599

PATIENT
  Age: 44 Year
  Sex: Female
  Weight: 74 kg

DRUGS (9)
  1. DEPO-PROVERA [Suspect]
     Indication: MENSTRUAL CYCLE MANAGEMENT
     Dosage: 150 MG, UNK
     Route: 030
     Dates: start: 20101112
  2. HALDOL [Concomitant]
     Indication: SCHIZOPHRENIA
     Dosage: 5 MG, UNK
     Dates: start: 19830101
  3. HALDOL [Concomitant]
     Indication: DELIRIUM
  4. HALDOL [Concomitant]
     Indication: DEPRESSION
  5. AKINETON [Concomitant]
     Indication: DELIRIUM
     Dosage: .5 MG, UNK
     Dates: start: 19830101
  6. AKINETON [Concomitant]
     Indication: DEPRESSION
  7. DIAZEPAM [Concomitant]
     Indication: INSOMNIA
     Dosage: 5 MG, UNK
     Dates: start: 19830101
  8. DIAZEPAM [Concomitant]
     Indication: DEPRESSION
  9. METFORMIN [Concomitant]
     Indication: TYPE 2 DIABETES MELLITUS
     Dosage: UNK
     Dates: start: 20050101

REACTIONS (15)
  - ARTHROPATHY [None]
  - DIZZINESS [None]
  - DROOLING [None]
  - FINGER DEFORMITY [None]
  - HYPOAESTHESIA FACIAL [None]
  - MENSTRUAL DISORDER [None]
  - MENSTRUATION DELAYED [None]
  - NERVE INJURY [None]
  - NERVOUSNESS [None]
  - OVARIAN CYST [None]
  - POLLAKIURIA [None]
  - SYNCOPE [None]
  - TREMOR [None]
  - VAGINAL DISCHARGE [None]
  - WEIGHT DECREASED [None]
